FAERS Safety Report 5249133-0 (Version None)
Quarter: 2007Q1

REPORT INFORMATION
  Report Type: 
  Country: None (occurrence: None)
  Receive Date: 20070228
  Receipt Date: 20070222
  Transmission Date: 20070707
  Serious: Yes (Death)
  Sender: FDA-Public Use
  Company Number: FR-AVENTIS-200710683FR

PATIENT
  Age: 83 Year
  Sex: Male
  Weight: 69 kg

DRUGS (2)
  1. LOVENOX [Suspect]
     Route: 058
     Dates: start: 20070103, end: 20070107
  2. ORGARAN                            /01353901/ [Concomitant]
     Route: 058
     Dates: start: 20070108, end: 20070111

REACTIONS (2)
  - HEPARIN-INDUCED THROMBOCYTOPENIA [None]
  - SUBDURAL HAEMATOMA [None]
